FAERS Safety Report 24880903 (Version 1)
Quarter: 2025Q1

REPORT INFORMATION
  Report Type: Spontaneous
  Country: US (occurrence: US)
  Receive Date: 20250124
  Receipt Date: 20250124
  Transmission Date: 20250409
  Serious: Yes (Hospitalization, Other)
  Sender: BRISTOL-MYERS SQUIBB COMPANY
  Company Number: US-BRISTOL-MYERS SQUIBB COMPANY-2025-008110

PATIENT
  Age: 56 Year
  Sex: Male
  Weight: 92.08 kg

DRUGS (1)
  1. REVLIMID [Suspect]
     Active Substance: LENALIDOMIDE
     Indication: Plasma cell leukaemia
     Dosage: 3WKS ON,1 WK OFF
     Route: 048

REACTIONS (4)
  - Fatigue [Unknown]
  - Asthenia [Unknown]
  - Acute kidney injury [Unknown]
  - Off label use [Unknown]
